FAERS Safety Report 5873588-1 (Version None)
Quarter: 2008Q3

REPORT INFORMATION
  Report Type: 
  Country: None (occurrence: None)
  Receive Date: 20080908
  Receipt Date: 20080829
  Transmission Date: 20090109
  Serious: Yes (Life-Threatening, Other)
  Sender: FDA-Public Use
  Company Number: ES-ALLERGAN-0810293US

PATIENT
  Age: 4 Month
  Sex: Male
  Weight: 6 kg

DRUGS (3)
  1. ALPHAGAN [Suspect]
     Indication: POSTOPERATIVE CARE
     Dosage: 1 GTT, Q8HR
     Route: 047
  2. PREDNISONE [Concomitant]
     Indication: POSTOPERATIVE CARE
     Route: 047
  3. CYCLOPENTOLATE HCL [Concomitant]
     Indication: POSTOPERATIVE CARE
     Route: 047

REACTIONS (8)
  - BRADYCARDIA [None]
  - DEPRESSED LEVEL OF CONSCIOUSNESS [None]
  - DIET REFUSAL [None]
  - DYSKINESIA [None]
  - HYPERTENSION [None]
  - HYPOTONIA [None]
  - INTRACRANIAL PRESSURE INCREASED [None]
  - LETHARGY [None]
